FAERS Safety Report 13620496 (Version 1)
Quarter: 2017Q2

REPORT INFORMATION
  Report Type: Spontaneous
  Country: US (occurrence: US)
  Receive Date: 20170607
  Receipt Date: 20170607
  Transmission Date: 20170830
  Serious: Yes (Other)
  Sender: FDA-Public Use
  Company Number: None

PATIENT
  Age: 82 Year
  Sex: Female
  Weight: 68.95 kg

DRUGS (14)
  1. METOPROLOL. [Concomitant]
     Active Substance: METOPROLOL
  2. CALCIUM [Concomitant]
     Active Substance: CALCIUM
  3. FLONASE [Concomitant]
     Active Substance: FLUTICASONE PROPIONATE
  4. PROLIA [Suspect]
     Active Substance: DENOSUMAB
     Indication: OSTEOPOROSIS
     Dosage: 1 TIME - 6 MOS SHOT
     Dates: start: 20170505, end: 20170505
  5. CYANNCOBALAMIN [Concomitant]
  6. KIRKLAND SIGNATURE ALLERCLEAR [Concomitant]
     Active Substance: LORATADINE
  7. BIOTIN [Concomitant]
     Active Substance: BIOTIN
  8. ASPIRIN. [Concomitant]
     Active Substance: ASPIRIN
  9. LYRICA [Concomitant]
     Active Substance: PREGABALIN
  10. VAGIFEM [Concomitant]
     Active Substance: ESTRADIOL
  11. VITAMIN D3 [Concomitant]
     Active Substance: CHOLECALCIFEROL
  12. MAGNESIUM [Concomitant]
     Active Substance: MAGNESIUM
  13. ATORVASTATIN [Concomitant]
     Active Substance: ATORVASTATIN
  14. MELATONIN [Concomitant]
     Active Substance: MELATONIN

REACTIONS (8)
  - Chills [None]
  - Lymph node pain [None]
  - Fatigue [None]
  - Pain [None]
  - Neck pain [None]
  - Sinusitis [None]
  - Musculoskeletal pain [None]
  - Sciatica [None]

NARRATIVE: CASE EVENT DATE: 20170505
